FAERS Safety Report 15892325 (Version 1)
Quarter: 2019Q1

REPORT INFORMATION
  Report Type: Spontaneous
  Country: FI (occurrence: FI)
  Receive Date: 20190130
  Receipt Date: 20190130
  Transmission Date: 20190417
  Serious: No
  Sender: FDA-Public Use
  Company Number: FI-IPSEN-CABO-18013429

PATIENT
  Age: 52 Year
  Sex: Male

DRUGS (1)
  1. CABOMETYX [Suspect]
     Active Substance: CABOZANTINIB S-MALATE
     Indication: RENAL CELL CARCINOMA
     Dosage: 60 MG, UNK
     Dates: start: 201803

REACTIONS (1)
  - Thrombocytosis [Recovering/Resolving]

NARRATIVE: CASE EVENT DATE: 201803
